FAERS Safety Report 8942924 (Version 2)
Quarter: 2012Q4

REPORT INFORMATION
  Report Type: 
  Country: AT (occurrence: AT)
  Receive Date: 20121204
  Receipt Date: 20121220
  Transmission Date: 20130627
  Serious: Yes (Hospitalization)
  Sender: FDA-Public Use
  Company Number: AT-BIOGENIDEC-2012BI055403

PATIENT
  Sex: Female

DRUGS (6)
  1. AVONEX [Suspect]
     Indication: MULTIPLE SCLEROSIS
     Route: 030
     Dates: start: 201007
  2. FURADANTIN [Concomitant]
  3. MIRTABENE [Concomitant]
  4. SIRDALUD [Concomitant]
  5. CISCUTAN (ISOTRETINOIN) [Concomitant]
  6. DIHYDROERGOTAMINE [Concomitant]

REACTIONS (11)
  - Drug-induced liver injury [Recovered/Resolved]
  - Autoimmune hepatitis [Unknown]
  - Rosacea [Unknown]
  - Activated partial thromboplastin time prolonged [Unknown]
  - Red cell distribution width increased [Unknown]
  - Blood iron increased [Unknown]
  - Serum ferritin increased [Unknown]
  - Hypertension [Unknown]
  - Urinary tract infection [Unknown]
  - Ammonia increased [Unknown]
  - Haemoglobin decreased [Unknown]
